FAERS Safety Report 12699702 (Version 1)
Quarter: 2016Q3

REPORT INFORMATION
  Report Type: Spontaneous
  Country: US (occurrence: US)
  Receive Date: 20160830
  Receipt Date: 20160830
  Transmission Date: 20161109
  Serious: Yes (Other)
  Sender: FDA-Public Use
  Company Number: US-DEPOMED, INC.-US-2016DEP011772

PATIENT

DRUGS (13)
  1. GRALISE [Suspect]
     Active Substance: GABAPENTIN
     Dosage: 300 MG, QD, TITRATED UP TO 1200 MG
     Route: 048
  2. GABAPENTIN. [Suspect]
     Active Substance: GABAPENTIN
     Dosage: 600 MG, TID
  3. GRALISE [Suspect]
     Active Substance: GABAPENTIN
     Indication: NECK PAIN
     Dosage: 300 MG, QD, TITRATED UP TO 1200 MG
     Route: 048
     Dates: start: 2012
  4. TRAMADOL. [Concomitant]
     Active Substance: TRAMADOL
     Indication: BACK PAIN
     Dosage: 50 MG, TID, PRN
     Route: 048
  5. GRALISE [Suspect]
     Active Substance: GABAPENTIN
     Dosage: 300 MG, UNK, TITRATED UP TO 1200 MG
     Route: 048
  6. ELIQUIS [Concomitant]
     Active Substance: APIXABAN
     Indication: ATRIAL FIBRILLATION
     Dosage: 2.5 MG, BID
     Route: 048
     Dates: start: 2012
  7. SOTALOL. [Concomitant]
     Active Substance: SOTALOL
     Indication: ATRIAL FIBRILLATION
     Dosage: 80 MG, QD
     Route: 048
     Dates: start: 2012
  8. GRALISE [Suspect]
     Active Substance: GABAPENTIN
     Dosage: 300 MG, QD, TITRATED UP TO 1200 MG
     Route: 048
     Dates: start: 201505
  9. GABAPENTIN. [Suspect]
     Active Substance: GABAPENTIN
     Indication: PRODUCT USED FOR UNKNOWN INDICATION
     Dosage: 600 MG, TID
  10. ASPIRIN. [Concomitant]
     Active Substance: ASPIRIN
     Indication: ATRIAL FIBRILLATION
     Dosage: 81 MG, QD
     Route: 048
     Dates: start: 2010
  11. GABAPENTIN. [Suspect]
     Active Substance: GABAPENTIN
     Dosage: 600 MG, TID
  12. SOTALOL. [Concomitant]
     Active Substance: SOTALOL
     Dosage: 40 MG, QD
     Route: 048
     Dates: start: 2012
  13. LOSARTAN POTASSSIUM [Concomitant]
     Indication: HYPERTENSION
     Dosage: 50 MG, QD
     Route: 048
     Dates: start: 2011

REACTIONS (19)
  - Hypertension [Unknown]
  - Neuralgia [Unknown]
  - Grief reaction [Unknown]
  - Product use issue [Not Recovered/Not Resolved]
  - Tonsillar neoplasm [Not Recovered/Not Resolved]
  - Dysphagia [Not Recovered/Not Resolved]
  - Dyspnoea [Unknown]
  - Malignant melanoma [Recovered/Resolved]
  - Gastrooesophageal reflux disease [Unknown]
  - Headache [Recovered/Resolved]
  - Nausea [Recovered/Resolved]
  - Drug ineffective for unapproved indication [Not Recovered/Not Resolved]
  - Throat cancer [Not Recovered/Not Resolved]
  - Bone neoplasm [Not Recovered/Not Resolved]
  - Adverse event [Unknown]
  - Oedema [Recovered/Resolved]
  - Dizziness [Recovered/Resolved]
  - Barrett^s oesophagus [Unknown]
  - Drug dose titration not performed [Recovered/Resolved]

NARRATIVE: CASE EVENT DATE: 2012
